FAERS Safety Report 11167208 (Version 1)
Quarter: 2015Q2

REPORT INFORMATION
  Report Type: Report from Study
  Country: US (occurrence: None)
  Receive Date: 20150603
  Receipt Date: 20150603
  Transmission Date: 20150821
  Serious: Yes (Death)
  Sender: FDA-Public Use
  Company Number: AMAG201500501

PATIENT
  Age: 68 Year
  Sex: Male
  Weight: 75.8 kg

DRUGS (6)
  1. FERUMOXYTOL [Suspect]
     Active Substance: FERUMOXYTOL
     Indication: NUCLEAR MAGNETIC RESONANCE IMAGING
     Route: 042
     Dates: start: 20150422, end: 20150422
  2. AVASTIN (BEVACZUMAB) [Concomitant]
  3. GADOTERIDOL [Suspect]
     Active Substance: GADOTERIDOL
     Indication: NUCLEAR MAGNETIC RESONANCE IMAGING
     Route: 042
     Dates: start: 20140422, end: 20150422
  4. GADOTERIDOL [Suspect]
     Active Substance: GADOTERIDOL
     Indication: SCAN WITH CONTRAST
     Route: 042
     Dates: start: 20140422, end: 20150422
  5. FERUMOXYTOL [Suspect]
     Active Substance: FERUMOXYTOL
     Indication: SCAN WITH CONTRAST
     Route: 042
     Dates: start: 20150422, end: 20150422
  6. TEMODAR [Concomitant]
     Active Substance: TEMOZOLOMIDE

REACTIONS (4)
  - Neoplasm progression [None]
  - Hypophagia [None]
  - Brain neoplasm [None]
  - Fluid intake reduced [None]

NARRATIVE: CASE EVENT DATE: 20150512
